FAERS Safety Report 4336866-3 (Version None)
Quarter: 2004Q1

REPORT INFORMATION
  Report Type: 
  Country: None (occurrence: None)
  Receive Date: 20040329
  Receipt Date: 20040112
  Transmission Date: 20041129
  Serious: No
  Sender: FDA-Public Use
  Company Number: USA040156353

PATIENT
  Age: 63 Year
  Sex: Female
  Weight: 70 kg

DRUGS (3)
  1. STRATTERA [Suspect]
     Indication: ATTENTION DEFICIT/HYPERACTIVITY DISORDER
     Dosage: 60 MG/IN THE MORNING
     Dates: start: 20030101
  2. DEXEDRINE (DEXAMFETAMINE SULFATE) [Concomitant]
  3. LEXAPRO [Concomitant]

REACTIONS (4)
  - DECREASED APPETITE [None]
  - EAR INFECTION [None]
  - INCREASED APPETITE [None]
  - MUSCLE TIGHTNESS [None]
